FAERS Safety Report 9490961 (Version 2)
Quarter: 2013Q3

REPORT INFORMATION
  Report Type: Spontaneous
  Country: US (occurrence: US)
  Receive Date: 20130830
  Receipt Date: 20130912
  Transmission Date: 20140515
  Serious: No
  Sender: FDA-Public Use
  Company Number: US-PFIZER INC-2013250185

PATIENT
  Sex: Female
  Weight: 47.62 kg

DRUGS (6)
  1. NEURONTIN [Suspect]
     Indication: BURNING SENSATION
     Dosage: UNK
  2. NEURONTIN [Suspect]
     Indication: ERYTHEMA
  3. ADVIL [Suspect]
     Dosage: UNK
  4. LYRICA [Suspect]
     Indication: BURNING SENSATION
     Dosage: UNK
  5. LYRICA [Suspect]
     Indication: ERYTHEMA
  6. ULTRAM [Suspect]
     Dosage: UNK

REACTIONS (5)
  - Off label use [Unknown]
  - Drug intolerance [Unknown]
  - Drug ineffective for unapproved indication [Unknown]
  - Tendon disorder [Unknown]
  - Malaise [Unknown]
